FAERS Safety Report 5123347-2 (Version None)
Quarter: 2006Q4

REPORT INFORMATION
  Report Type: 
  Country: None (occurrence: None)
  Receive Date: 20061005
  Receipt Date: 20060927
  Transmission Date: 20070319
  Serious: Yes (Death)
  Sender: FDA-Public Use
  Company Number: US018343

PATIENT
  Sex: Female

DRUGS (4)
  1. MODAFINIL [Suspect]
     Dosage: 100 MG ORAL
     Route: 048
     Dates: start: 20060601
  2. MODAFINIL [Suspect]
     Dosage: 200 MG ORAL
     Route: 048
     Dates: end: 20060801
  3. MODAFINIL [Suspect]
     Dosage: 300 MG ORAL
     Route: 048
     Dates: start: 20060801, end: 20060801
  4. PROTHIADEN [Concomitant]

REACTIONS (2)
  - COMPLETED SUICIDE [None]
  - THERAPEUTIC RESPONSE DECREASED [None]
